FAERS Safety Report 14658925 (Version 1)
Quarter: 2018Q1

REPORT INFORMATION
  Report Type: Report from Study
  Country: DE (occurrence: DE)
  Receive Date: 20180320
  Receipt Date: 20180320
  Transmission Date: 20180509
  Serious: Yes (Hospitalization, Other)
  Sender: FDA-Public Use
  Company Number: DE-VELOXIS PHARMACEUTICALS-2044115

PATIENT
  Age: 59 Year
  Sex: Male
  Weight: 82.8 kg

DRUGS (4)
  1. ENVARSUS XR [Suspect]
     Active Substance: TACROLIMUS
     Indication: RENAL TRANSPLANT
     Route: 048
     Dates: start: 20180109
  2. SIMULECT [Concomitant]
     Active Substance: BASILIXIMAB
  3. DECORTIN [Concomitant]
     Active Substance: PREDNISONE
     Dates: start: 20180109
  4. MYCOPHENOLATE MOFETIL. [Concomitant]
     Active Substance: MYCOPHENOLATE MOFETIL
     Dates: start: 20180109

REACTIONS (2)
  - Blood creatinine increased [Recovering/Resolving]
  - Transplant rejection [Unknown]

NARRATIVE: CASE EVENT DATE: 20180223
